FAERS Safety Report 9280273 (Version 1)
Quarter: 2013Q2

REPORT INFORMATION
  Report Type: Spontaneous
  Country: US (occurrence: US)
  Receive Date: 20130509
  Receipt Date: 20130509
  Transmission Date: 20140414
  Serious: No
  Sender: FDA-Public Use
  Company Number: US-BAYER-2013-056731

PATIENT
  Age: 53 Year
  Sex: Male
  Weight: 92.97 kg

DRUGS (1)
  1. BETASERON [Suspect]
     Indication: MULTIPLE SCLEROSIS
     Dosage: 0.25 ML, QOD
     Route: 058
     Dates: start: 20130415

REACTIONS (5)
  - Somnolence [Unknown]
  - Fatigue [Unknown]
  - Injection site pain [Unknown]
  - Injection site erythema [Unknown]
  - Injection site discolouration [Unknown]
